FAERS Safety Report 20898405 (Version 1)
Quarter: 2022Q2

REPORT INFORMATION
  Report Type: Spontaneous
  Country: US (occurrence: US)
  Receive Date: 20220601
  Receipt Date: 20220601
  Transmission Date: 20220721
  Serious: Yes (Other)
  Sender: FDA-Public Use
  Company Number: US-STRIDES ARCOLAB LIMITED-2022SP006324

PATIENT
  Age: 62 Year
  Sex: Female

DRUGS (4)
  1. IMIPRAMINE HYDROCHLORIDE [Suspect]
     Active Substance: IMIPRAMINE HYDROCHLORIDE
     Indication: Major depression
     Dosage: 200 MILLIGRAM, PER DAY
     Route: 065
  2. MIRTAZAPINE [Concomitant]
     Active Substance: MIRTAZAPINE
     Indication: Major depression
     Dosage: 30 MILLIGRAM, PER DAY
     Route: 065
  3. DIAZEPAM [Concomitant]
     Active Substance: DIAZEPAM
     Indication: Major depression
     Dosage: 5 MILLIGRAM, PER DAY
     Route: 065
  4. DIAZEPAM [Concomitant]
     Active Substance: DIAZEPAM
     Indication: Generalised anxiety disorder

REACTIONS (5)
  - Fall [Unknown]
  - Condition aggravated [Unknown]
  - Orthostatic hypotension [Unknown]
  - Skin hyperpigmentation [Unknown]
  - Iris hyperpigmentation [Unknown]
